FAERS Safety Report 11802797 (Version 1)
Quarter: 2015Q4

REPORT INFORMATION
  Report Type: Spontaneous
  Country: US (occurrence: US)
  Receive Date: 20151204
  Receipt Date: 20151204
  Transmission Date: 20160305
  Serious: No
  Sender: FDA-Public Use
  Company Number: US-BEH-2015050055

PATIENT
  Sex: Female
  Weight: 81.1 kg

DRUGS (15)
  1. HEPARIN [Concomitant]
     Active Substance: HEPARIN SODIUM
  2. TEGRETOL [Concomitant]
     Active Substance: CARBAMAZEPINE
  3. EPIPEN [Concomitant]
     Active Substance: EPINEPHRINE
  4. NORCO [Concomitant]
     Active Substance: ACETAMINOPHEN\HYDROCODONE BITARTRATE
  5. DIPHENHYDRAMINE. [Concomitant]
     Active Substance: DIPHENHYDRAMINE
  6. SODIUM CHLORIDE. [Concomitant]
     Active Substance: SODIUM CHLORIDE
  7. CELEBREX [Concomitant]
     Active Substance: CELECOXIB
  8. TOPROL XL [Concomitant]
     Active Substance: METOPROLOL SUCCINATE
  9. DANAZOL. [Concomitant]
     Active Substance: DANAZOL
  10. BERINERT [Suspect]
     Active Substance: HUMAN C1-ESTERASE INHIBITOR
     Indication: HEREDITARY ANGIOEDEMA
     Dosage: AS DIRECTED
     Route: 042
  11. CINRYZE [Concomitant]
     Active Substance: HUMAN C1-ESTERASE INHIBITOR
  12. IMDUR [Concomitant]
     Active Substance: ISOSORBIDE MONONITRATE
  13. TENORMIN [Concomitant]
     Active Substance: ATENOLOL
  14. BERINERT [Suspect]
     Active Substance: HUMAN C1-ESTERASE INHIBITOR
     Dosage: AS DIRECTED
     Route: 042
  15. ZOCOR [Concomitant]
     Active Substance: SIMVASTATIN

REACTIONS (1)
  - Nasopharyngitis [Recovered/Resolved]
